FAERS Safety Report 4566941-X (Version None)
Quarter: 2005Q1

REPORT INFORMATION
  Report Type: 
  Country: None (occurrence: None)
  Receive Date: 20050201
  Receipt Date: 20030423
  Transmission Date: 20050727
  Serious: Yes (Other)
  Sender: FDA-Public Use
  Company Number: US-BRISTOL-MYERS SQUIBB COMPANY-12254272

PATIENT
  Age: 36 Year
  Sex: Female

DRUGS (5)
  1. STADOL [Suspect]
     Indication: MIGRAINE
     Route: 045
     Dates: start: 20000116, end: 20010401
  2. ALPRAZOLAM [Concomitant]
  3. DIAZEPAM [Concomitant]
  4. HYDROCODONE + ACETAMINOPHEN [Concomitant]
  5. PROMETHAZINE [Concomitant]

REACTIONS (1)
  - DEPENDENCE [None]
